FAERS Safety Report 4788787-X (Version None)
Quarter: 2005Q4

REPORT INFORMATION
  Report Type: 
  Country: None (occurrence: None)
  Receive Date: 20051004
  Receipt Date: 20050927
  Transmission Date: 20060501
  Serious: Yes (Hospitalization)
  Sender: FDA-Public Use
  Company Number: FRWYE009327SEP05

PATIENT
  Age: 59 Year
  Sex: Female

DRUGS (7)
  1. EFFEXOR [Suspect]
     Indication: DEPRESSION
     Dosage: 50 MG 3X PER 1 DAY, ORAL
     Route: 048
     Dates: start: 20050515, end: 20050713
  2. PARACETAMOL/TRAMADOL HYDROCHLORIDE (PARACETAMOL/TRAMADOL HYDROCHLORIDE [Suspect]
     Dosage: ORAL
     Route: 047
     Dates: end: 20050713
  3. IKARAN (DIHYDROERGOTAMINE MESILATE) [Concomitant]
  4. TRIVASTAL (PIRIBEDIL) [Concomitant]
  5. ACTIVELLA [Concomitant]
  6. TENSTATEN (CICLETANINE) [Concomitant]
  7. NEXIUM [Concomitant]

REACTIONS (3)
  - CONVULSION [None]
  - DRUG INTERACTION [None]
  - JOINT DISLOCATION [None]
